FAERS Safety Report 16519553 (Version 1)
Quarter: 2019Q3

REPORT INFORMATION
  Report Type: Spontaneous
  Country: HU (occurrence: HU)
  Receive Date: 20190702
  Receipt Date: 20190702
  Transmission Date: 20191004
  Serious: Yes (Other)
  Sender: FDA-Public Use
  Company Number: PHHY2019HU143396

PATIENT
  Age: 60 Year
  Sex: Female

DRUGS (4)
  1. BENDAMUSTINE [Suspect]
     Active Substance: BENDAMUSTINE
     Indication: B-CELL LYMPHOMA
     Dosage: UNK
     Route: 065
     Dates: start: 201203
  2. METHOTREXATE. [Suspect]
     Active Substance: METHOTREXATE
     Indication: PNEUMOCYSTIS JIROVECII PNEUMONIA
     Dosage: 10 MG, QW
     Route: 065
     Dates: start: 2002
  3. RITUXIMAB. [Suspect]
     Active Substance: RITUXIMAB
     Indication: B-CELL LYMPHOMA
     Dosage: UNK
     Route: 065
     Dates: start: 201203
  4. XARELTO [Concomitant]
     Active Substance: RIVAROXABAN
     Indication: PRODUCT USED FOR UNKNOWN INDICATION
     Dosage: UNK
     Route: 065

REACTIONS (13)
  - Splenomegaly [Unknown]
  - Anaemia [Unknown]
  - Disease progression [Unknown]
  - Chronic myeloid leukaemia [Unknown]
  - Thrombocytopenia [Unknown]
  - Granulocytosis [Unknown]
  - Pyrexia [Unknown]
  - Cytopenia [Unknown]
  - Portal vein thrombosis [Unknown]
  - B-cell lymphoma [Unknown]
  - Hyperplasia [Unknown]
  - Hepatomegaly [Unknown]
  - Leukocytosis [Unknown]

NARRATIVE: CASE EVENT DATE: 201108
